FAERS Safety Report 19519732 (Version 1)
Quarter: 2021Q3

REPORT INFORMATION
  Report Type: Spontaneous
  Country: US (occurrence: US)
  Receive Date: 20210712
  Receipt Date: 20210712
  Transmission Date: 20211014
  Serious: Yes (Hospitalization, Other)
  Sender: FDA-Public Use
  Company Number: US-ACCORD-230870

PATIENT
  Age: 14 Year
  Sex: Female

DRUGS (6)
  1. LORAZEPAM. [Concomitant]
     Active Substance: LORAZEPAM
     Dosage: UP TO 7.5 MG OVER 24 HOURS
  2. CLONIDINE. [Concomitant]
     Active Substance: CLONIDINE
     Dosage: AT BEDTIME
  3. AMANTADINE. [Suspect]
     Active Substance: AMANTADINE HYDROCHLORIDE
     Indication: ATTENTION DEFICIT HYPERACTIVITY DISORDER
     Dosage: 100 MG TWICE A DAY
  4. TOPIRAMATE. [Concomitant]
     Active Substance: TOPIRAMATE
     Dosage: AT BEDTIME
  5. BUPROPION. [Suspect]
     Active Substance: BUPROPION
     Indication: DEPRESSIVE SYMPTOM
     Dosage: EXTENDED RELEASE
  6. HALOPERIDOL. [Concomitant]
     Active Substance: HALOPERIDOL

REACTIONS (1)
  - Neurotoxicity [Recovered/Resolved]
